FAERS Safety Report 19106393 (Version 2)
Quarter: 2021Q2

REPORT INFORMATION
  Report Type: Report from Study
  Country: ES (occurrence: ES)
  Receive Date: 20210407
  Receipt Date: 20210423
  Transmission Date: 20210717
  Serious: Yes (Hospitalization)
  Sender: FDA-Public Use
  Company Number: ES-EXELIXIS-XL18421039045

PATIENT
  Age: 75 Year
  Sex: Male

DRUGS (5)
  1. ATEZOLIZUMAB. [Suspect]
     Active Substance: ATEZOLIZUMAB
     Indication: HORMONE-REFRACTORY PROSTATE CANCER
     Dosage: 1200 MG, Q3WEEKS
     Route: 042
     Dates: start: 20210322
  2. XL184 [Suspect]
     Active Substance: CABOZANTINIB
     Indication: HORMONE-REFRACTORY PROSTATE CANCER
     Dosage: 40 MG, QD
     Route: 048
     Dates: start: 20210322
  3. APIXABAN [Concomitant]
     Active Substance: APIXABAN
     Indication: ATRIAL FIBRILLATION
  4. DRONEDARONE [Concomitant]
     Active Substance: DRONEDARONE
     Indication: ATRIAL FIBRILLATION
  5. LOSARTAN. [Concomitant]
     Active Substance: LOSARTAN
     Indication: HYPERTENSION

REACTIONS (1)
  - Respiratory tract infection [Recovered/Resolved]

NARRATIVE: CASE EVENT DATE: 20210330
